FAERS Safety Report 8383659-6 (Version None)
Quarter: 2012Q1

REPORT INFORMATION
  Report Type: 
  Country: None (occurrence: None)
  Receive Date: 20120323
  Receipt Date: 20110322
  Transmission Date: 20120608
  Serious: Yes (Hospitalization)
  Sender: FDA-Public Use
  Company Number: 163-21880-11030532

PATIENT
  Age: 83 Year
  Sex: Female

DRUGS (1)
  1. REVLIMID [Suspect]
     Indication: NEOPLASM
     Dosage: 5 MG, 1 IN 1 D, PO
     Route: 048
     Dates: start: 20110121, end: 20110225

REACTIONS (3)
  - FULL BLOOD COUNT DECREASED [None]
  - NAUSEA [None]
  - VOMITING [None]
